FAERS Safety Report 4533129-8 (Version None)
Quarter: 2004Q4

REPORT INFORMATION
  Report Type: 
  Country: None (occurrence: None)
  Receive Date: 20041206
  Receipt Date: 20041026
  Transmission Date: 20050328
  Serious: No
  Sender: FDA-Public Use
  Company Number: USA041082292

PATIENT
  Age: 42 Year
  Sex: Female

DRUGS (5)
  1. CYMBALTA [Suspect]
     Indication: DEPRESSION
     Dosage: 60 MG/1 DAY
  2. CYMBALTA [Suspect]
     Indication: DYSTHYMIC DISORDER
     Dosage: 60 MG/1 DAY
  3. ZOLOFT [Concomitant]
  4. TOPAMAX [Concomitant]
  5. LEVLITE [Concomitant]

REACTIONS (2)
  - HAEMATOCHEZIA [None]
  - STOMACH DISCOMFORT [None]
